FAERS Safety Report 15795657 (Version 4)
Quarter: 2021Q4

REPORT INFORMATION
  Report Type: Report from Study
  Country: US (occurrence: US)
  Receive Date: 20190107
  Receipt Date: 20211126
  Transmission Date: 20220303
  Serious: Yes (Other)
  Sender: FDA-Public Use
  Company Number: US-JAZZ-2019-US-000008

PATIENT
  Sex: Female

DRUGS (42)
  1. XYREM [Suspect]
     Active Substance: SODIUM OXYBATE
     Indication: Narcolepsy
     Dosage: 2.25 G, BID
     Route: 048
     Dates: start: 201507, end: 201508
  2. XYREM [Suspect]
     Active Substance: SODIUM OXYBATE
     Dosage: DOSE ADJUSTMENT
     Route: 048
     Dates: start: 201508, end: 201812
  3. XYREM [Suspect]
     Active Substance: SODIUM OXYBATE
     Dosage: 3 G, BID
     Route: 048
     Dates: start: 201812
  4. ADDERALL [Concomitant]
     Active Substance: AMPHETAMINE ASPARTATE\AMPHETAMINE SULFATE\DEXTROAMPHETAMINE SACCHARATE\DEXTROAMPHETAMINE SULFATE
     Indication: Product used for unknown indication
     Dosage: UNK
     Route: 048
     Dates: start: 20180926
  5. MOMETASONE FUROATE [Concomitant]
     Active Substance: MOMETASONE FUROATE
     Indication: Product used for unknown indication
     Dosage: UNK
     Dates: start: 201603
  6. OXCARBAZEPINE [Concomitant]
     Active Substance: OXCARBAZEPINE
     Indication: Product used for unknown indication
     Dosage: UNK
     Dates: start: 201603, end: 201901
  7. TOPIRAMATE [Concomitant]
     Active Substance: TOPIRAMATE
     Indication: Product used for unknown indication
     Dosage: 100 MG
     Dates: start: 201603, end: 201901
  8. TOPIRAMATE [Concomitant]
     Active Substance: TOPIRAMATE
     Dosage: 25 MG
     Dates: start: 20150701, end: 201603
  9. WELLBUTRIN [Concomitant]
     Active Substance: BUPROPION HYDROCHLORIDE
     Indication: Product used for unknown indication
     Dosage: UNK
     Dates: start: 201603, end: 201901
  10. XANAX [Concomitant]
     Active Substance: ALPRAZOLAM
     Indication: Product used for unknown indication
     Dosage: UNK
     Dates: start: 201603, end: 201901
  11. PROGESTERONE [Concomitant]
     Active Substance: PROGESTERONE
     Indication: Product used for unknown indication
     Dosage: UNK
     Dates: start: 20160104, end: 20160330
  12. AMITIZA [Concomitant]
     Active Substance: LUBIPROSTONE
     Indication: Product used for unknown indication
     Dosage: UNK
     Dates: start: 201601
  13. MELATONIN [Concomitant]
     Active Substance: MELATONIN
     Indication: Product used for unknown indication
     Dosage: UNK
     Dates: start: 201511
  14. ALLEGRA ALLERGY [Concomitant]
     Active Substance: FEXOFENADINE HYDROCHLORIDE
     Indication: Product used for unknown indication
     Dosage: UNK
     Dates: start: 20151007, end: 201603
  15. LORATADINE [Concomitant]
     Active Substance: LORATADINE
     Indication: Product used for unknown indication
     Dosage: UNK
     Dates: start: 20151007, end: 201603
  16. EXCEDRIN MIGRAINE [Concomitant]
     Active Substance: ACETAMINOPHEN\ASPIRIN\CAFFEINE
     Indication: Product used for unknown indication
     Dosage: UNK
     Dates: start: 20151007
  17. ONDANSETRON HCL [Concomitant]
     Active Substance: ONDANSETRON HYDROCHLORIDE
     Indication: Product used for unknown indication
     Dosage: UNK
     Dates: start: 20151007
  18. LAMICTAL [Concomitant]
     Active Substance: LAMOTRIGINE
     Indication: Product used for unknown indication
     Dosage: UNK
     Dates: start: 20150924, end: 20151007
  19. VALIUM [Concomitant]
     Active Substance: DIAZEPAM
     Indication: Product used for unknown indication
     Dosage: UNK
     Dates: start: 20150924, end: 201603
  20. VALIUM [Concomitant]
     Active Substance: DIAZEPAM
     Dosage: UNK
     Dates: end: 201901
  21. VITAMIN D3 [Concomitant]
     Active Substance: CHOLECALCIFEROL
     Indication: Product used for unknown indication
     Dosage: UNK
     Dates: start: 20150924, end: 201612
  22. LORAZEPAM [Concomitant]
     Active Substance: LORAZEPAM
     Indication: Product used for unknown indication
     Dosage: UNK
     Dates: start: 20150727, end: 20150924
  23. RITALIN [Concomitant]
     Active Substance: METHYLPHENIDATE HYDROCHLORIDE
     Indication: Product used for unknown indication
     Dosage: UNK
     Dates: start: 20150201, end: 201901
  24. TIZANIDINE HYDROCHLORIDE [Concomitant]
     Active Substance: TIZANIDINE HYDROCHLORIDE
     Indication: Product used for unknown indication
     Dosage: UNK
     Dates: start: 20150201, end: 201901
  25. COLCRYS [Concomitant]
     Active Substance: COLCHICINE
     Indication: Product used for unknown indication
     Dosage: UNK
     Dates: start: 20150101
  26. COENZYME Q10 [Concomitant]
     Active Substance: DIETARY SUPPLEMENT\UBIDECARENONE
     Indication: Product used for unknown indication
     Dosage: UNK
     Dates: start: 20140701
  27. MAGNESIUM CITRATE [Concomitant]
     Active Substance: MAGNESIUM CITRATE
     Indication: Product used for unknown indication
     Dosage: UNK
     Dates: start: 20140701
  28. THIAMINE HYDROCHLORIDE [Concomitant]
     Active Substance: THIAMINE HYDROCHLORIDE
     Indication: Product used for unknown indication
     Dosage: UNK
     Dates: start: 20140701, end: 201605
  29. LIPITOR [Concomitant]
     Active Substance: ATORVASTATIN CALCIUM
     Indication: Product used for unknown indication
     Dosage: UNK
     Dates: start: 20140501
  30. CYANOCOBALAMIN [Concomitant]
     Active Substance: CYANOCOBALAMIN
     Indication: Product used for unknown indication
     Dosage: UNK
     Dates: start: 201405
  31. LINZESS [Concomitant]
     Active Substance: LINACLOTIDE
     Indication: Product used for unknown indication
     Dosage: UNK
     Dates: start: 20140101, end: 201601
  32. NORCO [Concomitant]
     Active Substance: ACETAMINOPHEN\HYDROCODONE BITARTRATE
     Indication: Product used for unknown indication
     Dosage: UNK
     Dates: start: 20140101, end: 201402
  33. SUMATRIPTAN [Concomitant]
     Active Substance: SUMATRIPTAN
     Indication: Product used for unknown indication
     Dosage: UNK
     Dates: start: 20130101, end: 201901
  34. OMEPRAZOLE [Concomitant]
     Active Substance: OMEPRAZOLE
     Indication: Product used for unknown indication
     Dosage: UNK
     Dates: start: 20130101, end: 201602
  35. LUNESTA [Concomitant]
     Active Substance: ESZOPICLONE
     Indication: Product used for unknown indication
  36. ESOMEPRAZOLE MAGNESIUM [Concomitant]
     Active Substance: ESOMEPRAZOLE MAGNESIUM
     Indication: Product used for unknown indication
  37. PROPRANOLOL [Concomitant]
     Active Substance: PROPRANOLOL HYDROCHLORIDE
     Indication: Product used for unknown indication
  38. PROZAC [Concomitant]
     Active Substance: FLUOXETINE HYDROCHLORIDE
     Indication: Product used for unknown indication
  39. RIBOFLAVIN [Concomitant]
     Active Substance: RIBOFLAVIN
     Indication: Product used for unknown indication
     Dosage: UNK
     Dates: end: 201605
  40. HYDROXYZINE HYDROCHLORIDE [Concomitant]
     Active Substance: HYDROXYZINE HYDROCHLORIDE
     Indication: Product used for unknown indication
     Dosage: UNK
     Dates: start: 20190101, end: 201901
  41. ZOLOFT [Concomitant]
     Active Substance: SERTRALINE HYDROCHLORIDE
     Indication: Product used for unknown indication
     Dosage: 100 MG
     Dates: end: 201901
  42. ZOLOFT [Concomitant]
     Active Substance: SERTRALINE HYDROCHLORIDE
     Dosage: 50 MG
     Dates: end: 201603

REACTIONS (11)
  - Ovarian cyst [Recovered/Resolved]
  - Illness [Unknown]
  - Migraine [Recovering/Resolving]
  - Cluster headache [Recovered/Resolved]
  - Heart rate increased [Unknown]
  - Abdominal distension [Unknown]
  - Blood pressure increased [Recovered/Resolved]
  - Agitation [Unknown]
  - Insomnia [Unknown]
  - Drug intolerance [Unknown]
  - Pre-existing condition improved [Unknown]
